FAERS Safety Report 10592431 (Version 1)
Quarter: 2014Q4

REPORT INFORMATION
  Report Type: Report from Study
  Country: ES (occurrence: ES)
  Receive Date: 20141119
  Receipt Date: 20141119
  Transmission Date: 20150529
  Serious: Yes (Other)
  Sender: FDA-Public Use
  Company Number: ES-009507513-1411ESP004568

PATIENT

DRUGS (4)
  1. RIBAVIRIN. [Suspect]
     Active Substance: RIBAVIRIN
     Indication: HEPATITIS C VIRUS TEST POSITIVE
     Dosage: 800 MG, QD
     Route: 048
  2. PEGINTERFERON ALFA-2A [Suspect]
     Active Substance: PEGINTERFERON ALFA-2A
     Indication: HEPATITIS C VIRUS TEST POSITIVE
     Dosage: 180 MICROGRAM, QW
  3. TELAPREVIR [Suspect]
     Active Substance: TELAPREVIR
     Indication: HEPATITIS C VIRUS TEST POSITIVE
     Dosage: 750 MG, Q8H
  4. DARUNAVIR [Suspect]
     Active Substance: DARUNAVIR
     Indication: HEPATITIS C VIRUS TEST POSITIVE
     Dosage: 800/100 MG QD

REACTIONS (1)
  - Adverse event [Unknown]
